FAERS Safety Report 5315284-5 (Version None)
Quarter: 2007Q2

REPORT INFORMATION
  Report Type: 
  Country: None (occurrence: None)
  Receive Date: 20070427
  Receipt Date: 20070423
  Transmission Date: 20071010
  Serious: Yes (Death)
  Sender: FDA-Public Use
  Company Number: 2007SP007614

PATIENT
  Age: 49 Year
  Sex: Male

DRUGS (9)
  1. PEG-INTRON [Suspect]
     Indication: HEPATITIS C
     Dosage: 120 MCG; SC
     Route: 058
     Dates: start: 20060910
  2. RIBAVIRIN [Suspect]
     Indication: HEPATITIS C
     Dosage: SEE IMAGE
     Route: 048
     Dates: start: 20060910
  3. RIBAVIRIN [Suspect]
     Indication: HEPATITIS C
     Dosage: SEE IMAGE
     Route: 048
     Dates: start: 20060910
  4. OXYCODONE (CON.) [Concomitant]
  5. LEXAPRO (CON.) [Concomitant]
  6. MVI (CON.) [Concomitant]
  7. PROTONIX (CON.) [Concomitant]
  8. XANAX (CON.) [Concomitant]
  9. LEVSIN (CON.) [Concomitant]

REACTIONS (1)
  - DEATH [None]
